FAERS Safety Report 5837940-2 (Version None)
Quarter: 2008Q3

REPORT INFORMATION
  Report Type: 
  Country: None (occurrence: None)
  Receive Date: 20080808
  Receipt Date: 20080730
  Transmission Date: 20090109
  Serious: Yes (Other)
  Sender: FDA-Public Use
  Company Number: US-ROCHE-347664

PATIENT
  Sex: Female
  Weight: 86.2 kg

DRUGS (5)
  1. XELODA [Suspect]
     Route: 048
     Dates: start: 20030701, end: 20080723
  2. DIOVAN [Concomitant]
     Indication: HYPERTENSION
  3. HYDROCHLOROTHIAZIDE [Concomitant]
     Indication: HYPERTENSION
  4. SYNTHROID [Concomitant]
     Indication: HYPOTHYROIDISM
  5. FILGRASTIM [Concomitant]

REACTIONS (4)
  - DISEASE PROGRESSION [None]
  - FOOT DEFORMITY [None]
  - HYPOAESTHESIA [None]
  - PALMAR-PLANTAR ERYTHRODYSAESTHESIA SYNDROME [None]
